FAERS Safety Report 5220899-9 (Version None)
Quarter: 2007Q1

REPORT INFORMATION
  Report Type: 
  Country: None (occurrence: None)
  Receive Date: 20070126
  Receipt Date: 20070125
  Transmission Date: 20070707
  Serious: Yes (Hospitalization)
  Sender: FDA-Public Use
  Company Number: FR-GLAXOSMITHKLINE-B0455543A

PATIENT
  Age: 63 Year
  Sex: Male
  Weight: 70 kg

DRUGS (4)
  1. CLAMOXYL [Suspect]
     Indication: BRONCHITIS
     Route: 048
     Dates: start: 20060924, end: 20061005
  2. LENALIDOMIDE [Suspect]
     Dosage: 25MG CYCLIC
     Route: 048
     Dates: start: 20060531, end: 20060928
  3. DEXAMETHASONE TAB [Concomitant]
     Dosage: 40MG PER DAY
     Route: 065
     Dates: start: 20060912, end: 20060915
  4. PLAVIX [Concomitant]
     Route: 065

REACTIONS (3)
  - ECCHYMOSIS [None]
  - HAEMORRHAGIC DISORDER [None]
  - THROMBOCYTOPENIA [None]
